FAERS Safety Report 13560611 (Version 1)
Quarter: 2017Q2

REPORT INFORMATION
  Report Type: Spontaneous
  Country: US (occurrence: US)
  Receive Date: 20170518
  Receipt Date: 20170518
  Transmission Date: 20170830
  Serious: No
  Sender: FDA-Public Use
  Company Number: US-ROCHE-759018

PATIENT
  Sex: Female
  Weight: 51.3 kg

DRUGS (1)
  1. ALEVE [Suspect]
     Active Substance: NAPROXEN SODIUM
     Indication: PRODUCT USED FOR UNKNOWN INDICATION
     Dosage: TOOK 3 TABLETS WITHIN 6 HOURS
     Route: 065

REACTIONS (2)
  - No adverse event [Unknown]
  - Overdose [Unknown]
